FAERS Safety Report 12992231 (Version 1)
Quarter: 2016Q4

REPORT INFORMATION
  Report Type: Spontaneous
  Country: FR (occurrence: FR)
  Receive Date: 20161201
  Receipt Date: 20161201
  Transmission Date: 20170207
  Serious: Yes (Other)
  Sender: FDA-Public Use
  Company Number: FR-009507513-1611FRA013761

PATIENT
  Age: 44 Year
  Sex: Male

DRUGS (1)
  1. KEYTRUDA [Suspect]
     Active Substance: PEMBROLIZUMAB
     Indication: MALIGNANT MELANOMA
     Dosage: 1 DF, EVERY 3 WEEKS
     Route: 042
     Dates: start: 20160330

REACTIONS (2)
  - Paronychia [Recovering/Resolving]
  - Hyperthyroidism [Recovered/Resolved with Sequelae]

NARRATIVE: CASE EVENT DATE: 201606
